FAERS Safety Report 5466676-5 (Version None)
Quarter: 2007Q3

REPORT INFORMATION
  Report Type: 
  Country: None (occurrence: None)
  Receive Date: 20070924
  Receipt Date: 20070924
  Transmission Date: 20080115
  Serious: Yes (Hospitalization)
  Sender: FDA-Public Use
  Company Number: None

PATIENT
  Sex: Male
  Weight: 88 kg

DRUGS (5)
  1. TAXOTERE [Suspect]
     Dosage: 36MG/M2 D 1,8,15 Q28 IV
     Route: 042
  2. ALOXI [Concomitant]
  3. DECADRON [Concomitant]
  4. ZOMETA [Concomitant]
  5. ARANESP [Concomitant]

REACTIONS (1)
  - PROSTATE CANCER METASTATIC [None]
